FAERS Safety Report 9586449 (Version 1)
Quarter: 2013Q3

REPORT INFORMATION
  Report Type: Spontaneous
  Country: KR (occurrence: None)
  Receive Date: 20130926
  Receipt Date: 20130926
  Transmission Date: 20140515
  Serious: Yes (Other)
  Sender: FDA-Public Use
  Company Number: 2013-01381

PATIENT
  Age: 58 Year
  Sex: Male

DRUGS (4)
  1. PREGABALIN [Suspect]
     Indication: EPILEPSY
  2. VALPROIC ACID [Suspect]
     Indication: EPILEPSY
  3. LAMOTRIGINE [Suspect]
     Indication: EPILEPSY
  4. OXCARBAZEPINE [Suspect]
     Indication: EPILEPSY

REACTIONS (1)
  - Toxic encephalopathy [None]
